FAERS Safety Report 6438737-5 (Version None)
Quarter: 2009Q4

REPORT INFORMATION
  Report Type: 
  Country: None (occurrence: None)
  Receive Date: 20091113
  Receipt Date: 20091102
  Transmission Date: 20100525
  Serious: Yes (Hospitalization)
  Sender: FDA-Public Use
  Company Number: US-ELI_LILLY_AND_COMPANY-US200911000712

PATIENT
  Sex: Female
  Weight: 76.36 kg

DRUGS (8)
  1. GEMCITABINE HCL [Suspect]
     Indication: LUNG CANCER METASTATIC
     Dosage: 1730 MG, OTHER
     Route: 042
     Dates: start: 20090914
  2. CETUXIMAB [Suspect]
     Indication: LUNG CANCER METASTATIC
     Dosage: 433 MG, OTHER
     Route: 042
     Dates: start: 20090914
  3. CISPLATIN [Suspect]
     Indication: LUNG CANCER METASTATIC
     Dosage: 130 MG, OTHER
     Route: 042
     Dates: start: 20090914
  4. ATIVAN [Concomitant]
     Indication: ANXIETY
     Dosage: 0.5 MG, EVERY 6 HRS
  5. KEPPRA [Concomitant]
     Dosage: 500 MG, 2/D
  6. ZOFRAN [Concomitant]
     Dosage: 8 MG, 2/D
  7. PERCOCET [Concomitant]
     Indication: PAIN
     Dosage: UNK, AS NEEDED
  8. PERCOCET [Concomitant]
     Dosage: UNK, AS NEEDED

REACTIONS (2)
  - DEHYDRATION [None]
  - NAUSEA [None]
